FAERS Safety Report 10877932 (Version 1)
Quarter: 2015Q1

REPORT INFORMATION
  Report Type: Spontaneous
  Country: US (occurrence: US)
  Receive Date: 20150302
  Receipt Date: 20150302
  Transmission Date: 20150721
  Serious: Yes (Other)
  Sender: FDA-Public Use
  Company Number: US-ABBVIE-15P-163-1338173-00

PATIENT
  Sex: Male

DRUGS (1)
  1. ANDROGEL [Suspect]
     Active Substance: TESTOSTERONE
     Indication: BLOOD TESTOSTERONE DECREASED
     Route: 062
     Dates: start: 20080905, end: 20140629

REACTIONS (12)
  - Lung disorder [Unknown]
  - Fear [Unknown]
  - Emotional distress [Unknown]
  - Anhedonia [Unknown]
  - Social problem [Unknown]
  - Pain [Unknown]
  - Injury [Unknown]
  - Thrombosis [Unknown]
  - Pain in extremity [Unknown]
  - Economic problem [Unknown]
  - Anxiety [Unknown]
  - Impaired work ability [Unknown]

NARRATIVE: CASE EVENT DATE: 20140724
